FAERS Safety Report 15508032 (Version 1)
Quarter: 2018Q4

REPORT INFORMATION
  Report Type: Spontaneous
  Country: FR (occurrence: FR)
  Receive Date: 20181016
  Receipt Date: 20181016
  Transmission Date: 20190205
  Serious: Yes (Congenital Anomaly)
  Sender: FDA-Public Use
  Company Number: FR-TEVA-2018-FR-964600

PATIENT
  Age: 0 Day
  Sex: Male

DRUGS (7)
  1. SPASFON [PHLOROGLUCINOL;TRIMETHYLPHLOROGLUCINOL] [Suspect]
     Active Substance: PHLOROGLUCINOL\1,3,5-TRIMETHOXYBENZENE
     Indication: PAIN
     Route: 064
     Dates: start: 20140516, end: 20141017
  2. DAFALGAN CODEINE [Suspect]
     Active Substance: ACETAMINOPHEN\CODEINE PHOSPHATE
     Indication: PAIN
     Route: 064
     Dates: start: 201403
  3. TARDYFERON [Suspect]
     Active Substance: FERROUS SULFATE
     Indication: ANAEMIA
     Route: 064
     Dates: start: 20140731, end: 20141017
  4. PROGESTAN [Suspect]
     Active Substance: PROGESTERONE
     Indication: IN VITRO FERTILISATION
     Dosage: 600 MILLIGRAM DAILY;
     Route: 064
     Dates: start: 20140127, end: 201403
  5. AMOXICILLINE [Suspect]
     Active Substance: AMOXICILLIN
     Indication: URINARY TRACT INFECTION
     Route: 064
     Dates: start: 20140602, end: 20140607
  6. DOLIPRANE [Suspect]
     Active Substance: ACETAMINOPHEN
     Indication: PAIN
     Route: 064
     Dates: start: 201403
  7. ATARAX [Suspect]
     Active Substance: HYDROXYZINE HYDROCHLORIDE
     Indication: ANXIETY
     Route: 064
     Dates: start: 20140516

REACTIONS (3)
  - Microcephaly [Recovered/Resolved]
  - Foetal growth restriction [Recovered/Resolved]
  - Cryptorchism [Recovered/Resolved]

NARRATIVE: CASE EVENT DATE: 20140825
